FAERS Safety Report 6067793-1 (Version None)
Quarter: 2009Q1

REPORT INFORMATION
  Report Type: 
  Country: None (occurrence: None)
  Receive Date: 20090203
  Receipt Date: 20090123
  Transmission Date: 20090719
  Serious: Yes (Other)
  Sender: FDA-Public Use
  Company Number: 230863K09USA

PATIENT
  Age: 26 Year
  Sex: Female

DRUGS (4)
  1. REBIF [Suspect]
     Indication: MULTIPLE SCLEROSIS
     Dosage: 44 MCG, 3 IN 1 WEEKS, SUBCUTANEOUS
     Route: 058
     Dates: start: 20080730
  2. VALIUM [Concomitant]
  3. AMBIEN [Concomitant]
  4. MELATONIN (MELATONIN) [Concomitant]

REACTIONS (2)
  - KIDNEY ENLARGEMENT [None]
  - PAIN [None]
